FAERS Safety Report 16983522 (Version 4)
Quarter: 2020Q1

REPORT INFORMATION
  Report Type: Spontaneous
  Country: US (occurrence: US)
  Receive Date: 20191101
  Receipt Date: 20200207
  Transmission Date: 20200409
  Serious: Yes (Hospitalization, Other)
  Sender: FDA-Public Use
  Company Number: US-AMGEN-USASP2019175585

PATIENT
  Age: 70 Year
  Sex: Female
  Weight: 78.91 kg

DRUGS (6)
  1. VITAMIN D [ERGOCALCIFEROL] [Concomitant]
     Active Substance: ERGOCALCIFEROL
     Dosage: 50000 IU, QWK
  2. PROLIA [Suspect]
     Active Substance: DENOSUMAB
     Indication: OSTEOPOROSIS POSTMENOPAUSAL
     Dosage: 60 MILLIGRAM, Q6MO
     Route: 065
     Dates: start: 201412
  3. GLIPIZIDE. [Concomitant]
     Active Substance: GLIPIZIDE
     Indication: TYPE 2 DIABETES MELLITUS
     Dosage: 1 DOSAGE FORM, BID
  4. LANTUS [Concomitant]
     Active Substance: INSULIN GLARGINE
     Indication: TYPE 2 DIABETES MELLITUS
  5. PROLIA [Suspect]
     Active Substance: DENOSUMAB
     Dosage: 60 MILLIGRAM, Q6MO
     Route: 065
     Dates: start: 20170303
  6. GLIPIZIDE. [Concomitant]
     Active Substance: GLIPIZIDE
     Dosage: 2 DOSAGE FORM, BID

REACTIONS (22)
  - Contusion [Unknown]
  - Blood glucose increased [Unknown]
  - Therapy non-responder [Unknown]
  - Blood calcium decreased [Recovered/Resolved]
  - Ageusia [Unknown]
  - Dysphagia [Unknown]
  - Tongue spasm [Not Recovered/Not Resolved]
  - Sleep disorder due to a general medical condition [Recovering/Resolving]
  - Urinary tract infection [Unknown]
  - Carotid artery stenosis [Unknown]
  - Swelling [Unknown]
  - Fall [Unknown]
  - Arthralgia [Unknown]
  - Spinal stenosis [Unknown]
  - Glossodynia [Not Recovered/Not Resolved]
  - Nerve compression [Unknown]
  - Dysarthria [Unknown]
  - Asthenia [Not Recovered/Not Resolved]
  - Myalgia [Unknown]
  - Cerebrovascular accident [Unknown]
  - Blood magnesium decreased [Unknown]
  - Fatigue [Unknown]

NARRATIVE: CASE EVENT DATE: 2017
